FAERS Safety Report 6675254-1 (Version None)
Quarter: 2010Q2

REPORT INFORMATION
  Report Type: 
  Country: None (occurrence: None)
  Receive Date: 20100409
  Receipt Date: 20091216
  Transmission Date: 20101027
  Serious: No
  Sender: FDA-Public Use
  Company Number: A0835438A

PATIENT
  Age: 79 Year
  Sex: Female

DRUGS (6)
  1. TYKERB [Suspect]
     Indication: BREAST CANCER
     Dosage: 5MG PER DAY
     Route: 048
     Dates: start: 20091208
  2. HYDROXYZINE [Concomitant]
  3. GLIPIZIDE [Concomitant]
  4. METOPROLOL TARTRATE [Concomitant]
  5. HYDROCODONE BITARTRATE [Concomitant]
  6. DRONABINOL [Concomitant]

REACTIONS (1)
  - DECREASED APPETITE [None]
